FAERS Safety Report 13245087 (Version 14)
Quarter: 2017Q4

REPORT INFORMATION
  Report Type: Report from Study
  Country: JP (occurrence: JP)
  Receive Date: 20170216
  Receipt Date: 20171215
  Transmission Date: 20180320
  Serious: Yes (Death, Hospitalization, Other)
  Sender: FDA-Public Use
  Company Number: JP-AMGEN-JPNCT2016185997

PATIENT
  Age: 73 Year
  Sex: Female
  Weight: 62 kg

DRUGS (12)
  1. LEVOFOLINATE [Suspect]
     Active Substance: LEVOLEUCOVORIN CALCIUM
     Indication: RECTAL CANCER
     Dosage: 200 MG/M2, Q2WEEKS
     Route: 041
     Dates: start: 20160830, end: 20170124
  2. PANITUMUMAB [Suspect]
     Active Substance: PANITUMUMAB
     Dosage: 4.8 MG, Q2WK
     Route: 041
     Dates: start: 20161227, end: 20170124
  3. FLUOROURACIL. [Suspect]
     Active Substance: FLUOROURACIL
     Dosage: 3900 MG, Q2WEEKS
     Route: 041
     Dates: start: 20160830, end: 20160913
  4. FLUOROURACIL. [Suspect]
     Active Substance: FLUOROURACIL
     Dosage: 650 MG/M2, Q2WK
     Route: 041
     Dates: start: 20160927, end: 20170124
  5. PANITUMUMAB [Suspect]
     Active Substance: PANITUMUMAB
     Indication: RECTAL CANCER
     Dosage: 390 MG, Q2WK
     Route: 041
     Dates: start: 20160830, end: 20161129
  6. OXALIPLATIN. [Suspect]
     Active Substance: OXALIPLATIN
     Indication: RECTAL CANCER
     Dosage: 85 MG/M2, Q2WEEKS
     Route: 041
     Dates: start: 20160830, end: 20170124
  7. HEPARINOID [Concomitant]
     Active Substance: CHONDROITIN SULFATE (BOVINE)
     Indication: DRY SKIN
     Dosage: UNK
     Route: 062
     Dates: start: 20160927, end: 20170223
  8. FLUOROURACIL. [Suspect]
     Active Substance: FLUOROURACIL
     Indication: RECTAL CANCER
     Dosage: 650 MG, Q2WEEKS
     Route: 040
     Dates: start: 20160830, end: 20160830
  9. BORIC ACID, POTASSIUM CHLORIDE, SODIUM BICARBONATE, SODIUM CHLORIDE, S [Concomitant]
     Indication: PROPHYLAXIS
     Dosage: UNK
     Route: 047
     Dates: start: 20161213, end: 20170223
  10. FLUOROURACIL. [Suspect]
     Active Substance: FLUOROURACIL
     Dosage: 1600 MG/M2, Q2WK
     Route: 041
     Dates: start: 20160927, end: 20170124
  11. MINOCYCLINE HYDROCHLORIDE. [Concomitant]
     Active Substance: MINOCYCLINE HYDROCHLORIDE
     Indication: DERMATITIS ACNEIFORM
     Dosage: 100 MG, QD
     Route: 048
     Dates: start: 20160830, end: 20170207
  12. CALCIUM LEVOFOLINATE [Suspect]
     Active Substance: LEVOLEUCOVORIN CALCIUM
     Indication: RECTAL CANCER
     Dosage: 200 MG/M2, Q2WEEKS
     Route: 041
     Dates: start: 20160830, end: 20170124

REACTIONS (9)
  - Lung disorder [Fatal]
  - Spinal compression fracture [Recovering/Resolving]
  - Dry skin [Not Recovered/Not Resolved]
  - Peripheral sensory neuropathy [Not Recovered/Not Resolved]
  - Skin fissures [Not Recovered/Not Resolved]
  - Stomatitis [Recovered/Resolved]
  - Paronychia [Not Recovered/Not Resolved]
  - Stomatitis [Unknown]
  - Hypertension [Recovered/Resolved]

NARRATIVE: CASE EVENT DATE: 20161115
